FAERS Safety Report 8433654-3 (Version None)
Quarter: 2012Q2

REPORT INFORMATION
  Report Type: 
  Country: None (occurrence: None)
  Receive Date: 20120323
  Receipt Date: 20111004
  Transmission Date: 20120825
  Serious: Yes (Hospitalization)
  Sender: FDA-Public Use
  Company Number: 163-21880-11062864

PATIENT
  Age: 59 Year
  Sex: Male

DRUGS (9)
  1. METFFORMIN HYDROCHLORIDE [Concomitant]
  2. FENTANYL [Concomitant]
  3. GABAPENTIN [Concomitant]
  4. DILTIAZEM [Concomitant]
  5. TIKOSYN [Concomitant]
  6. POTASSIUIM (POTASSIUM) [Concomitant]
  7. PANTOPRAZOLE [Concomitant]
  8. REVLIMID [Suspect]
     Indication: MULTIPLE MYELOMA
     Dosage: 15 MG, 1 IN 1 D, PO
     Route: 048
     Dates: start: 20101223
  9. DEXAMETHASONE [Concomitant]

REACTIONS (2)
  - PANCYTOPENIA [None]
  - ASTHENIA [None]
